FAERS Safety Report 23357807 (Version 1)
Quarter: 2024Q1

REPORT INFORMATION
  Report Type: Spontaneous
  Country: US (occurrence: None)
  Receive Date: 20240101
  Receipt Date: 20240101
  Transmission Date: 20240410
  Serious: Yes (Life-Threatening, Hospitalization, Disabling, Other)
  Sender: FDA-Public Use
  Company Number: None

PATIENT
  Age: 66 Year
  Sex: Female
  Weight: 53.55 kg

DRUGS (4)
  1. ELIQUIS [Suspect]
     Active Substance: APIXABAN
     Indication: Thrombosis
     Dosage: OTHER QUANTITY : 1 TABLET(S);?FREQUENCY : EVERY 12 HOURS;?
     Route: 048
  2. SYNTHROID [Concomitant]
     Active Substance: LEVOTHYROXINE SODIUM
  3. SYNTHROID [Concomitant]
     Active Substance: LEVOTHYROXINE SODIUM
  4. VITAMINS [Suspect]
     Active Substance: VITAMINS

REACTIONS (10)
  - Diarrhoea [None]
  - Abdominal pain upper [None]
  - Gastrointestinal pain [None]
  - Dumping syndrome [None]
  - Malnutrition [None]
  - Asthenia [None]
  - Urinary incontinence [None]
  - Anal incontinence [None]
  - Cachexia [None]
  - Emotional distress [None]

NARRATIVE: CASE EVENT DATE: 20140414
